FAERS Safety Report 7388055-6 (Version None)
Quarter: 2011Q2

REPORT INFORMATION
  Report Type: 
  Country: None (occurrence: None)
  Receive Date: 20110401
  Receipt Date: 20110329
  Transmission Date: 20111010
  Serious: No
  Sender: FDA-Public Use
  Company Number: US-PFIZER INC-2010132069

PATIENT
  Sex: Male
  Weight: 103 kg

DRUGS (5)
  1. LYRICA [Suspect]
     Indication: INTERVERTEBRAL DISC DISORDER
     Dosage: 50 MG, 3X/DAY
     Route: 048
     Dates: start: 20100915, end: 20101103
  2. TRAMADOL [Concomitant]
     Indication: PAIN
     Dosage: 50 MG, UNK
     Dates: start: 20100827
  3. LYRICA [Suspect]
     Indication: PAIN IN EXTREMITY
     Dosage: 50 MG, 2X/DAY
     Route: 048
     Dates: start: 20101001
  4. LYRICA [Suspect]
     Indication: NEURALGIA
  5. PREVACID [Concomitant]
     Dosage: UNK

REACTIONS (1)
  - DIARRHOEA [None]
